FAERS Safety Report 9399203 (Version 1)
Quarter: 2013Q3

REPORT INFORMATION
  Report Type: Report from Study
  Country: ES (occurrence: ES)
  Receive Date: 20130715
  Receipt Date: 20130715
  Transmission Date: 20140515
  Serious: Yes (Other)
  Sender: FDA-Public Use
  Company Number: ES-ROCHE-1248222

PATIENT
  Sex: 0

DRUGS (3)
  1. BEVACIZUMAB [Suspect]
     Indication: GLIOBLASTOMA MULTIFORME
     Route: 065
  2. IRINOTECAN [Suspect]
     Indication: GLIOBLASTOMA MULTIFORME
     Dosage: FOR PATIENTS RECEIVING ENZYME-INDUCING ANTIEPILEPTIC DRUGS EIAEDS EVERY 14 DAYS ON A 4-WEEK CYCLE
     Route: 065
  3. IRINOTECAN [Suspect]
     Dosage: FOR PATIENTS NOT RECEIVING EIAEDS EVERY 14 DAYS ON A 4-WEEK CYCLE
     Route: 065

REACTIONS (5)
  - Asthenia [Unknown]
  - Musculoskeletal pain [Unknown]
  - Diarrhoea [Unknown]
  - Hepatotoxicity [Unknown]
  - Embolism [Unknown]
